FAERS Safety Report 7095602-0 (Version None)
Quarter: 2010Q4

REPORT INFORMATION
  Report Type: 
  Country: None (occurrence: None)
  Receive Date: 20101111
  Receipt Date: 20101029
  Transmission Date: 20110411
  Serious: Yes (Hospitalization)
  Sender: FDA-Public Use
  Company Number: JP-JNJFOC-20101002306

PATIENT
  Sex: Female

DRUGS (3)
  1. CRAVIT [Suspect]
     Indication: PYREXIA
     Route: 048
  2. CRAVIT [Suspect]
     Indication: INFECTION
     Route: 048
  3. LOXONIN [Suspect]
     Indication: PYREXIA
     Route: 048

REACTIONS (3)
  - CONVULSION [None]
  - DEPRESSED LEVEL OF CONSCIOUSNESS [None]
  - SPEECH DISORDER [None]
